FAERS Safety Report 5742980-8 (Version None)
Quarter: 2008Q2

REPORT INFORMATION
  Report Type: 
  Country: None (occurrence: None)
  Receive Date: 20080519
  Receipt Date: 20080513
  Transmission Date: 20081010
  Serious: Yes (Other)
  Sender: FDA-Public Use
  Company Number: US-ASTRAZENECA-2008UW09800

PATIENT
  Age: 76 Year
  Sex: Female
  Weight: 88.5 kg

DRUGS (16)
  1. SYMBICORT [Suspect]
     Indication: ASTHMA
     Dosage: 2 PUFFS BID
     Route: 055
     Dates: start: 20080401, end: 20080501
  2. SYMBICORT [Suspect]
     Dosage: 2 PUFFS BID
     Route: 055
     Dates: start: 20080501
  3. NEXIUM [Concomitant]
     Route: 048
  4. TOPROL-XL [Concomitant]
     Route: 048
  5. JANUVIA [Concomitant]
  6. SYNTHROID [Concomitant]
  7. HYDRODIURIL [Concomitant]
  8. CARDIZEM [Concomitant]
  9. COZAAR [Concomitant]
  10. XOPTIC [Concomitant]
  11. FOSAMAX [Concomitant]
  12. SINGULAIR [Concomitant]
  13. VITAMINS [Concomitant]
  14. CALCIUM [Concomitant]
  15. GLUCOSAMINE [Concomitant]
  16. CHONDROITIN [Concomitant]

REACTIONS (3)
  - OEDEMA PERIPHERAL [None]
  - PITTING OEDEMA [None]
  - WEIGHT INCREASED [None]
